FAERS Safety Report 23562436 (Version 2)
Quarter: 2024Q4

REPORT INFORMATION
  Report Type: Report from Study
  Country: US (occurrence: US)
  Receive Date: 20240226
  Receipt Date: 20241118
  Transmission Date: 20250115
  Serious: No
  Sender: SANOFI AVENTIS
  Company Number: US-SA-SAC20240219000082

PATIENT
  Age: 64 Year
  Sex: Female
  Weight: 54.4 kg

DRUGS (17)
  1. DUPIXENT [Suspect]
     Active Substance: DUPILUMAB
     Indication: Dermatitis atopic
     Dosage: 300 MG, QOW
     Route: 058
     Dates: start: 20210225
  2. OMEPRAZOLE [Concomitant]
     Active Substance: OMEPRAZOLE
  3. TRULICITY [Concomitant]
     Active Substance: DULAGLUTIDE
  4. CARVEDILOL [Concomitant]
     Active Substance: CARVEDILOL
  5. LANTUS [Concomitant]
     Active Substance: INSULIN GLARGINE
  6. ASPIRIN [Concomitant]
     Active Substance: ASPIRIN
  7. LEVOTHYROXINE [Concomitant]
     Active Substance: LEVOTHYROXINE
  8. NOVOLIN N [Concomitant]
     Active Substance: INSULIN HUMAN
  9. GABAPENTIN [Concomitant]
     Active Substance: GABAPENTIN
  10. SIMVASTATIN [Concomitant]
     Active Substance: SIMVASTATIN
  11. IRON [Concomitant]
     Active Substance: IRON
  12. FAMOTIDINE [Concomitant]
     Active Substance: FAMOTIDINE
  13. CARAFATE [Concomitant]
     Active Substance: SUCRALFATE
  14. METFORMIN HYDROCHLORIDE [Concomitant]
     Active Substance: METFORMIN HYDROCHLORIDE
  15. MONTELUKAST SODIUM [Concomitant]
     Active Substance: MONTELUKAST SODIUM
  16. GLYBURIDE [Concomitant]
     Active Substance: GLYBURIDE
  17. OMEGA-3 FATTY ACIDS [Concomitant]
     Active Substance: OMEGA-3 FATTY ACIDS

REACTIONS (3)
  - Scratch [Unknown]
  - Dermatitis [Unknown]
  - Rash [Unknown]
